FAERS Safety Report 20976326 (Version 1)
Quarter: 2022Q2

REPORT INFORMATION
  Report Type: Spontaneous
  Country: JP (occurrence: JP)
  Receive Date: 20220617
  Receipt Date: 20220617
  Transmission Date: 20220721
  Serious: Yes (Hospitalization, Other)
  Sender: FDA-Public Use
  Company Number: JP-SUNOVION-2022SMP003630

PATIENT
  Age: 6 Decade
  Sex: Female

DRUGS (2)
  1. LATUDA [Suspect]
     Active Substance: LURASIDONE HYDROCHLORIDE
     Indication: Schizophrenia
     Dosage: 40 MG, QD
     Route: 048
     Dates: start: 202204, end: 202205
  2. RISPERDAL [Concomitant]
     Active Substance: RISPERIDONE
     Dosage: UNK
     Route: 065

REACTIONS (1)
  - Schizophrenia [Recovering/Resolving]
